FAERS Safety Report 9695693 (Version 2)
Quarter: 2014Q1

REPORT INFORMATION
  Report Type: Spontaneous
  Country: SA (occurrence: SA)
  Receive Date: 20131119
  Receipt Date: 20140211
  Transmission Date: 20141002
  Serious: Yes (Death, Hospitalization)
  Sender: FDA-Public Use
  Company Number: SA-BIOMARINAP-SA-2013-101881

PATIENT
  Age: 4 Year
  Sex: Female

DRUGS (2)
  1. NAGLAZYME [Suspect]
     Indication: MUCOPOLYSACCHARIDOSIS VI
     Dosage: 10 MG, QW
     Route: 041
     Dates: start: 201012
  2. NAGLAZYME [Suspect]
     Dosage: 15 MG, QW
     Route: 041
     Dates: end: 20130815

REACTIONS (4)
  - Bacteraemia [Fatal]
  - Pneumonia [Unknown]
  - Pulmonary haemorrhage [Unknown]
  - Acute respiratory distress syndrome [Unknown]
